FAERS Safety Report 21121757 (Version 3)
Quarter: 2022Q4

REPORT INFORMATION
  Report Type: Report from Study
  Country: MX (occurrence: None)
  Receive Date: 20220722
  Receipt Date: 20221011
  Transmission Date: 20230113
  Serious: Yes (Hospitalization, Disabling)
  Sender: FDA-Public Use
  Company Number: MX-Eisai Medical Research-EC-2022-119204

PATIENT
  Age: 71 Year
  Sex: Female

DRUGS (2)
  1. LENVIMA [Suspect]
     Active Substance: LENVATINIB
     Indication: Thyroid cancer
     Dosage: DOSE AND FREQUENCY UNKNOWN
     Route: 048
     Dates: start: 202205, end: 202205
  2. LENVIMA [Suspect]
     Active Substance: LENVATINIB
     Dosage: DOSE REDUCED, FREQUENCY UNKNOWN
     Route: 048
     Dates: start: 20220712

REACTIONS (8)
  - Tachycardia [Unknown]
  - Swollen tongue [Unknown]
  - Pharyngeal swelling [Unknown]
  - Dyspnoea [Unknown]
  - Vomiting [Unknown]
  - Fatigue [Unknown]
  - Tongue discomfort [Unknown]
  - Eating disorder [Unknown]

NARRATIVE: CASE EVENT DATE: 20220501
